FAERS Safety Report 8184714-6 (Version None)
Quarter: 2012Q1

REPORT INFORMATION
  Report Type: 
  Country: None (occurrence: None)
  Receive Date: 20120305
  Receipt Date: 20120305
  Transmission Date: 20120608
  Serious: Yes (Life-Threatening)
  Sender: FDA-Public Use
  Company Number: None

PATIENT
  Sex: Female
  Weight: 105.23 kg

DRUGS (1)
  1. PROGESTERONE [Suspect]
     Indication: ABORTION SPONTANEOUS
     Dosage: UNKNOWN
     Route: 030
     Dates: start: 20091015, end: 20100215

REACTIONS (4)
  - MATERNAL EXPOSURE DURING PREGNANCY [None]
  - UTERINE HYPOTONUS [None]
  - CAESAREAN SECTION [None]
  - POSTPARTUM HAEMORRHAGE [None]
